FAERS Safety Report 4591657-3 (Version None)
Quarter: 2005Q1

REPORT INFORMATION
  Report Type: 
  Country: None (occurrence: None)
  Receive Date: 20050218
  Receipt Date: 20050204
  Transmission Date: 20050727
  Serious: Yes (Other)
  Sender: FDA-Public Use
  Company Number: 2005026476

PATIENT
  Sex: Male

DRUGS (3)
  1. CELEBREX [Suspect]
     Indication: BACK DISORDER
     Dosage: 200 MG (200 MG,1 IN 1 D)
  2. BEXTRA [Suspect]
     Indication: OSTEOARTHRITIS
     Dosage: (1 IN 1 D)
  3. ROFECOXIB [Suspect]
     Indication: BACK DISORDER
     Dosage: (1 IN 1 D)

REACTIONS (7)
  - ABNORMAL FAECES [None]
  - DRUG INEFFECTIVE [None]
  - FLATULENCE [None]
  - HAEMORRHAGE [None]
  - HIP ARTHROPLASTY [None]
  - OSTEOARTHRITIS [None]
  - OSTEOPOROSIS [None]
